FAERS Safety Report 25500287 (Version 9)
Quarter: 2025Q4

REPORT INFORMATION
  Report Type: Report from Study
  Country: EU (occurrence: EU)
  Receive Date: 20250701
  Receipt Date: 20251212
  Transmission Date: 20260117
  Serious: Yes (Life-Threatening, Hospitalization, Other)
  Sender: AUROBINDO
  Company Number: EU-AUROBINDO-AUR-APL-2025-033081

PATIENT
  Age: 47 Year
  Sex: Male

DRUGS (119)
  1. BELINOSTAT [Suspect]
     Active Substance: BELINOSTAT
     Indication: Angioimmunoblastic T-cell lymphoma
     Dosage: 600 MG/M2, CYCLICAL (CYCLE 1 DAY 1)
     Route: 065
     Dates: start: 20250616, end: 20250616
  2. BELINOSTAT [Suspect]
     Active Substance: BELINOSTAT
     Indication: Peripheral T-cell lymphoma unspecified stage IV
     Dosage: 600 MG/M2, CYCLICAL (CYCLE 1 DAY 2)
     Route: 065
     Dates: start: 20250617, end: 20250617
  3. BELINOSTAT [Suspect]
     Active Substance: BELINOSTAT
     Dosage: 600 MG/M2, CYCLICAL (CYCLE 1 DAY 3)
     Route: 065
     Dates: start: 20250618, end: 20250618
  4. BELINOSTAT [Suspect]
     Active Substance: BELINOSTAT
     Dosage: 600 MG/M2, CYCLICAL (CYCLE 1 DAY 4)
     Route: 065
     Dates: start: 20250619, end: 20250619
  5. BELINOSTAT [Suspect]
     Active Substance: BELINOSTAT
     Dosage: 600 MG/M2  (CYCLE 1 DAY 1 (C1D1))-ON DAY 1 TO DAY 5 OF EACH 21 DAYS CYCLE)
     Dates: start: 20250616, end: 20250620
  6. BELINOSTAT [Suspect]
     Active Substance: BELINOSTAT
     Dosage: 600 MG/M2, CYCLICAL (CYCLE 2 DAY 3)
     Route: 065
     Dates: start: 20250709, end: 20250709
  7. BELINOSTAT [Suspect]
     Active Substance: BELINOSTAT
     Dosage: 600 MG/M2, CYCLICAL (CYCLE 1 DAY 5)
     Route: 065
     Dates: start: 20250620, end: 20250620
  8. BELINOSTAT [Suspect]
     Active Substance: BELINOSTAT
     Dosage: 600 MG/M2, CYCLICAL (CYCLE 2 DAY 1)
     Route: 065
     Dates: start: 20250707, end: 20250707
  9. BELINOSTAT [Suspect]
     Active Substance: BELINOSTAT
     Dosage: 600 MG/M2, CYCLICAL (CYCLE 2 DAY 2)
     Route: 065
     Dates: start: 20250708, end: 20250708
  10. BELINOSTAT [Suspect]
     Active Substance: BELINOSTAT
     Dosage: 600 MG/M2, CYCLICAL (CYCLE 2 DAY 4)
     Route: 065
     Dates: start: 20250710, end: 20250710
  11. BELINOSTAT [Suspect]
     Active Substance: BELINOSTAT
     Dosage: 600 MG/M2, CYCLICAL (CYCLE 2 DAY 5)
     Route: 065
     Dates: start: 20250711, end: 20250711
  12. BELINOSTAT [Suspect]
     Active Substance: BELINOSTAT
     Dosage: 600 MG/M2, CYCLICAL (CYCLE 3 DAY 1)
     Route: 065
     Dates: start: 20250728, end: 20250728
  13. BELINOSTAT [Suspect]
     Active Substance: BELINOSTAT
     Dosage: 600 MG/M2, CYCLICAL (CYCLE 3 DAY 2)
     Route: 065
     Dates: start: 20250729, end: 20250729
  14. BELINOSTAT [Suspect]
     Active Substance: BELINOSTAT
     Dosage: 600 MG/M2, CYCLICAL (CYCLE 3 DAY 3)
     Route: 065
     Dates: start: 20250730, end: 20250730
  15. BELINOSTAT [Suspect]
     Active Substance: BELINOSTAT
     Dosage: 600 MG/M2, CYCLICAL (CYCLE 3 DAY 4)
     Route: 065
     Dates: start: 20250731, end: 20250731
  16. BELINOSTAT [Suspect]
     Active Substance: BELINOSTAT
     Dosage: 600 MG/M2, CYCLICAL (CYCLE 3 DAY 5)
     Route: 065
     Dates: start: 20250801, end: 20250801
  17. BELINOSTAT [Suspect]
     Active Substance: BELINOSTAT
     Dosage: 600 MG/M2, CYCLICAL (CYCLE 4 DAY 1)
     Route: 065
     Dates: start: 20250818, end: 20250818
  18. BELINOSTAT [Suspect]
     Active Substance: BELINOSTAT
     Dosage: 600 MG/M2, CYCLICAL (CYCLE 4 DAY 2)
     Route: 065
     Dates: start: 20250819, end: 20250819
  19. BELINOSTAT [Suspect]
     Active Substance: BELINOSTAT
     Dosage: 600 MG/M2, CYCLICAL (CYCLE 4 DAY 3)
     Route: 065
     Dates: start: 20250820, end: 20250820
  20. BELINOSTAT [Suspect]
     Active Substance: BELINOSTAT
     Dosage: 600 MG/M2, CYCLICAL (CYCLE 4 DAY 4)
     Route: 065
     Dates: start: 20250821, end: 20250821
  21. BELINOSTAT [Suspect]
     Active Substance: BELINOSTAT
     Dosage: 600 MG/M2, CYCLICAL (CYCLE 4 DAY 5)
     Route: 065
     Dates: start: 20250822, end: 20250822
  22. BELINOSTAT [Suspect]
     Active Substance: BELINOSTAT
     Dosage: 600 MG/M2, CYCLICAL (CYCLE 5 DAY 1)
     Route: 065
     Dates: start: 20250908, end: 20250908
  23. BELINOSTAT [Suspect]
     Active Substance: BELINOSTAT
     Dosage: 600 MG/M2, CYCLICAL (CYCLE 5 DAY 2)
     Route: 065
     Dates: start: 20250909, end: 20250909
  24. BELINOSTAT [Suspect]
     Active Substance: BELINOSTAT
     Dosage: 600 MG/M2, CYCLICAL (CYCLE 5 DAY 3)
     Route: 065
     Dates: start: 20250910, end: 20250910
  25. BELINOSTAT [Suspect]
     Active Substance: BELINOSTAT
     Dosage: 600 MG/M2, CYCLICAL (CYCLE 5 DAY 4)
     Route: 065
     Dates: start: 20250911, end: 20250911
  26. BELINOSTAT [Suspect]
     Active Substance: BELINOSTAT
     Dosage: 600 MG/M2, CYCLICAL (CYCLE 5 DAY 5)
     Route: 065
     Dates: start: 20250912, end: 20250912
  27. BELINOSTAT [Suspect]
     Active Substance: BELINOSTAT
     Dosage: 600 MG/M2, CYCLICAL (CYCLE 6 DAY 1)
     Route: 065
     Dates: start: 20250929, end: 20250929
  28. BELINOSTAT [Suspect]
     Active Substance: BELINOSTAT
     Dosage: 600 MG/M2, CYCLICAL (CYCLE 6 DAY 2)
     Route: 065
     Dates: start: 20250930, end: 20250930
  29. BELINOSTAT [Suspect]
     Active Substance: BELINOSTAT
     Dosage: 600 MG/M2, CYCLICAL (CYCLE 6 DAY 3)
     Route: 065
     Dates: start: 20251001, end: 20251001
  30. BELINOSTAT [Suspect]
     Active Substance: BELINOSTAT
     Dosage: 600 MG/M2, CYCLICAL (CYCLE 6 DAY 3)
     Route: 065
     Dates: start: 20251002, end: 20251002
  31. BELINOSTAT [Suspect]
     Active Substance: BELINOSTAT
     Dosage: 600 MG/M2, CYCLICAL (CYCLE 6 DAY 3)
     Route: 065
     Dates: start: 20251003, end: 20251003
  32. EPIRUBICIN [Suspect]
     Active Substance: EPIRUBICIN
     Indication: Angioimmunoblastic T-cell lymphoma
     Dosage: 50 MG/M2, CYCLICAL (CYCLE 1 DAY 1)
     Route: 065
     Dates: start: 20250616, end: 20250616
  33. EPIRUBICIN [Suspect]
     Active Substance: EPIRUBICIN
     Indication: Peripheral T-cell lymphoma unspecified stage IV
     Dosage: 50 MG/M2, CYCLICAL ( C1D1, ON DAY 1 OF EACH 21 DAYS CYCLE)
     Dates: start: 20250616, end: 20250620
  34. EPIRUBICIN [Suspect]
     Active Substance: EPIRUBICIN
     Dosage: 50 MG/M2, CYCLICAL (CYCLE 2 DAY 1)
     Route: 065
     Dates: start: 20250707, end: 20250707
  35. EPIRUBICIN [Suspect]
     Active Substance: EPIRUBICIN
     Dosage: 50 MG/M2, CYCLICAL (CYCLE 3 DAY 1)
     Route: 065
     Dates: start: 20250728, end: 20250728
  36. EPIRUBICIN [Suspect]
     Active Substance: EPIRUBICIN
     Dosage: 50 MG/M2, CYCLICAL (CYCLE 4 DAY 1)
     Route: 065
     Dates: start: 20250818, end: 20250818
  37. EPIRUBICIN [Suspect]
     Active Substance: EPIRUBICIN
     Dosage: 50 MG/M2, CYCLICAL (CYCLE 5 DAY 1)
     Route: 065
     Dates: start: 20250908, end: 20250908
  38. EPIRUBICIN [Suspect]
     Active Substance: EPIRUBICIN
     Dosage: 50 MG/M2, CYCLICAL (CYCLE 6 DAY 1)
     Route: 065
     Dates: start: 20250929, end: 20250929
  39. CYCLOPHOSPHAMIDE [Suspect]
     Active Substance: CYCLOPHOSPHAMIDE
     Indication: Angioimmunoblastic T-cell lymphoma
     Dosage: 750 MG/M2, CYCLICAL(CYCLE 1 DAY 1)
     Route: 065
     Dates: start: 20250616, end: 20250616
  40. CYCLOPHOSPHAMIDE [Suspect]
     Active Substance: CYCLOPHOSPHAMIDE
     Indication: Peripheral T-cell lymphoma unspecified stage IV
     Dosage: 750 MG/M2, CYCLICAL, , C1D1, ON DAY 1 OF EACH 21 DAYS CYCLE
     Dates: start: 20250616, end: 20250620
  41. CYCLOPHOSPHAMIDE [Suspect]
     Active Substance: CYCLOPHOSPHAMIDE
     Dosage: 750 MG/M2, CYCLICAL(CYCLE 2 DAY 1)
     Route: 065
     Dates: start: 20250707, end: 20250707
  42. CYCLOPHOSPHAMIDE [Suspect]
     Active Substance: CYCLOPHOSPHAMIDE
     Dosage: 750 MG/M2, CYCLICAL(CYCLE 3 DAY 1)
     Route: 065
     Dates: start: 20250728, end: 20250728
  43. CYCLOPHOSPHAMIDE [Suspect]
     Active Substance: CYCLOPHOSPHAMIDE
     Dosage: 750 MG/M2, CYCLICAL(CYCLE 4 DAY 1)
     Route: 065
     Dates: start: 20250818, end: 20250818
  44. CYCLOPHOSPHAMIDE [Suspect]
     Active Substance: CYCLOPHOSPHAMIDE
     Dosage: 750 MG/M2, CYCLICAL(CYCLE 5 DAY 1)
     Route: 065
     Dates: start: 20250908, end: 20250908
  45. CYCLOPHOSPHAMIDE [Suspect]
     Active Substance: CYCLOPHOSPHAMIDE
     Dosage: 750 MG/M2, CYCLICAL(CYCLE 6 DAY 1)
     Route: 065
     Dates: start: 20250929, end: 20250929
  46. VINCRISTINE [Suspect]
     Active Substance: VINCRISTINE
     Indication: Peripheral T-cell lymphoma unspecified stage IV
     Dosage: 1.4 MG/M2, CYCLICAL (C1D1, ON DAY 1 OF EACH 21 DAYS CYCLE)
     Dates: start: 20250616, end: 20250620
  47. VINCRISTINE [Suspect]
     Active Substance: VINCRISTINE
     Dosage: 1.4 MG/M2, CYCLICAL (CYCLE 5 DAY 1)
     Dates: start: 20250908, end: 20250908
  48. VINCRISTINE [Suspect]
     Active Substance: VINCRISTINE
     Dosage: 1.4 MG/M2, CYCLICAL (CYCLE 6 DAY 1)
     Dates: start: 20250929, end: 20250929
  49. ONCOVIN [Suspect]
     Active Substance: VINCRISTINE SULFATE
     Indication: Angioimmunoblastic T-cell lymphoma
     Dosage: 1.4 MG/M2, CYCLICAL (CYCLE 1 DAY 1)
     Route: 065
     Dates: start: 20250616, end: 20250616
  50. ONCOVIN [Suspect]
     Active Substance: VINCRISTINE SULFATE
     Dosage: 1.4 MG/M2, CYCLICAL (CYCLE 2 DAY 1)
     Route: 065
     Dates: start: 20250707, end: 20250707
  51. ONCOVIN [Suspect]
     Active Substance: VINCRISTINE SULFATE
     Dosage: 1.4 MG/M2, CYCLICAL (CYCLE 3 DAY 1)
     Route: 065
     Dates: start: 20250728, end: 20250728
  52. ONCOVIN [Suspect]
     Active Substance: VINCRISTINE SULFATE
     Dosage: 1.4 MG/M2, CYCLICAL (CYCLE 4 DAY 1)
     Route: 065
     Dates: start: 20250818, end: 20250818
  53. ONCOVIN [Suspect]
     Active Substance: VINCRISTINE SULFATE
     Dosage: 1.4 MG/M2, CYCLICAL (CYCLE 5 DAY 1)
     Route: 065
     Dates: start: 20250908, end: 20250908
  54. ONCOVIN [Suspect]
     Active Substance: VINCRISTINE SULFATE
     Dosage: 1.4 MG/M2, CYCLICAL (CYCLE 6 DAY 1)
     Route: 065
     Dates: start: 20250929, end: 20250929
  55. PREDNISONE [Suspect]
     Active Substance: PREDNISONE
     Indication: Angioimmunoblastic T-cell lymphoma
     Dosage: 100 MILLIGRAM, CYCLICAL CYCLE 1 DAY 1
     Route: 065
  56. PREDNISONE [Suspect]
     Active Substance: PREDNISONE
     Dosage: 100 MILLIGRAM, CYCLICAL CYCLE 1 DAY 2
     Route: 065
  57. PREDNISONE [Suspect]
     Active Substance: PREDNISONE
     Dosage: 100 MILLIGRAM, CYCLICAL CYCLE 1 DAY 3
     Route: 065
  58. PREDNISONE [Suspect]
     Active Substance: PREDNISONE
     Dosage: 100 MILLIGRAM, CYCLICAL CYCLE 1 DAY 4
     Route: 065
  59. PREDNISONE [Suspect]
     Active Substance: PREDNISONE
     Dosage: 100 MILLIGRAM, CYCLICAL CYCLE 1 DAY 5
     Route: 065
  60. PREDNISONE [Suspect]
     Active Substance: PREDNISONE
     Dosage: 100 MILLIGRAM, CYCLICAL CYCLE 2 DAY 5
     Route: 065
  61. PREDNISONE [Suspect]
     Active Substance: PREDNISONE
     Dosage: 100 MILLIGRAM, CYCLICAL CYCLE 2 DAY 2
     Route: 065
  62. PREDNISONE [Suspect]
     Active Substance: PREDNISONE
     Dosage: 100 MILLIGRAM, CYCLICAL CYCLE 2 DAY 3
     Route: 065
  63. PREDNISONE [Suspect]
     Active Substance: PREDNISONE
     Dosage: 100 MILLIGRAM, CYCLICAL CYCLE 2 DAY 4
     Route: 065
  64. PREDNISONE [Suspect]
     Active Substance: PREDNISONE
     Dosage: 100 MILLIGRAM, CYCLICAL CYCLE 2 DAY 5
     Route: 065
  65. PREDNISONE [Suspect]
     Active Substance: PREDNISONE
     Dosage: 100 MILLIGRAM, CYCLICAL CYCLE 3 DAY 1
     Route: 065
  66. PREDNISONE [Suspect]
     Active Substance: PREDNISONE
     Dosage: 100 MILLIGRAM, CYCLICAL CYCLE 3 DAY 2
     Route: 065
  67. PREDNISONE [Suspect]
     Active Substance: PREDNISONE
     Dosage: 100 MILLIGRAM, CYCLICAL CYCLE 3 DAY 3
     Route: 065
  68. PREDNISONE [Suspect]
     Active Substance: PREDNISONE
     Dosage: 100 MILLIGRAM, CYCLICAL CYCLE 3 DAY 4
     Route: 065
  69. PREDNISONE [Suspect]
     Active Substance: PREDNISONE
     Dosage: 100 MILLIGRAM, CYCLICAL CYCLE 3 DAY 5
     Route: 065
  70. PREDNISONE [Suspect]
     Active Substance: PREDNISONE
     Dosage: 100 MILLIGRAM, CYCLICAL CYCLE 4 DAY 1
     Route: 065
  71. PREDNISONE [Suspect]
     Active Substance: PREDNISONE
     Dosage: 100 MILLIGRAM, CYCLICAL CYCLE 4 DAY 2
     Route: 065
  72. PREDNISONE [Suspect]
     Active Substance: PREDNISONE
     Dosage: 100 MILLIGRAM, CYCLICAL CYCLE 4 DAY 3
     Route: 065
  73. PREDNISONE [Suspect]
     Active Substance: PREDNISONE
     Dosage: 100 MILLIGRAM, CYCLICAL CYCLE 4 DAY 4
     Route: 065
  74. PREDNISONE [Suspect]
     Active Substance: PREDNISONE
     Dosage: 100 MILLIGRAM, CYCLICAL CYCLE 4 DAY 4
     Route: 065
  75. PREDNISONE [Suspect]
     Active Substance: PREDNISONE
     Dosage: 100 MILLIGRAM, CYCLICAL CYCLE 5 DAY 1
     Route: 065
  76. PREDNISONE [Suspect]
     Active Substance: PREDNISONE
     Dosage: 100 MILLIGRAM, CYCLICAL (CYCLE 5 DAY 2)
     Route: 065
  77. PREDNISONE [Suspect]
     Active Substance: PREDNISONE
     Dosage: 100 MILLIGRAM, CYCLICAL (CYCLE 5 DAY 3)
     Route: 065
  78. PREDNISONE [Suspect]
     Active Substance: PREDNISONE
     Dosage: 100 MILLIGRAM, CYCLICAL (CYCLE 5 DAY 4)
     Route: 065
  79. PREDNISONE [Suspect]
     Active Substance: PREDNISONE
     Dosage: 100 MILLIGRAM, CYCLICAL (CYCLE 5 DAY 5)
     Route: 065
  80. PREDNISONE [Suspect]
     Active Substance: PREDNISONE
     Dosage: 100 MILLIGRAM, CYCLICAL (CYCLE 6 DAY 1)
     Route: 065
  81. PREDNISONE [Suspect]
     Active Substance: PREDNISONE
     Dosage: 100 MILLIGRAM, CYCLICAL (CYCLE 6 DAY 2)
     Route: 065
  82. PREDNISONE [Suspect]
     Active Substance: PREDNISONE
     Dosage: 100 MILLIGRAM, CYCLICAL (CYCLE 6 DAY 3)
     Route: 065
  83. PREDNISONE [Suspect]
     Active Substance: PREDNISONE
     Dosage: 100 MILLIGRAM, CYCLICAL (CYCLE 6 DAY 3)
     Route: 065
  84. PREDNISONE [Suspect]
     Active Substance: PREDNISONE
     Dosage: 100 MILLIGRAM, CYCLICAL (CYCLE 6 DAY 3)
     Route: 065
  85. PREDNISONE [Concomitant]
     Active Substance: PREDNISONE
     Indication: Pyrexia
     Dosage: 2.5 MILLIGRAM, ONCE A DAY
     Dates: start: 2025, end: 20250529
  86. PREDNISONE [Concomitant]
     Active Substance: PREDNISONE
     Indication: Peripheral T-cell lymphoma unspecified stage IV
     Dosage: 2.5 MILLIGRAM, ONCE A DAY
     Dates: start: 20250602, end: 20250727
  87. PREDNISONE [Concomitant]
     Active Substance: PREDNISONE
     Dosage: 2.5 MILLIGRAM, ONCE A DAY
     Dates: start: 20250603, end: 20250615
  88. PREDNISONE [Concomitant]
     Active Substance: PREDNISONE
     Dosage: 100 MG/M2, CYCLICAL (C1D1, ON DAY 1 TO DAY 5 OF EACH 21 DAYS CYCLE)
  89. SULFAMETHOXAZOLE\TRIMETHOPRIM [Concomitant]
     Active Substance: SULFAMETHOXAZOLE\TRIMETHOPRIM
     Indication: Infection prophylaxis
     Dosage: 1 DOSAGE FORM, 3 TIMES PER WEEK
  90. ACYCLOVIR [Concomitant]
     Active Substance: ACYCLOVIR
     Indication: Infection prophylaxis
     Dosage: 800 MILLIGRAM, ONCE A DAY
     Dates: start: 2025
  91. Pantroprazol [Concomitant]
     Indication: Prophylaxis
     Dosage: 1 DOSAGE FORM, ONCE A DAY
     Dates: start: 2025
  92. CALCIUM CARBONATE [Concomitant]
     Active Substance: CALCIUM CARBONATE
     Indication: Calcium deficiency
     Dosage: 1 DOSAGE FORM, ONCE A DAY
     Dates: start: 2025
  93. RIVAROXABAN [Concomitant]
     Active Substance: RIVAROXABAN
     Indication: Prophylaxis
     Dosage: 10 MILLIGRAM, ONCE A DAY
     Dates: start: 2025, end: 20250529
  94. RIVAROXABAN [Concomitant]
     Active Substance: RIVAROXABAN
     Dosage: 10 MILLIGRAM, ONCE A DAY
     Dates: start: 20250609, end: 20250617
  95. DEXAMETHASONE [Concomitant]
     Active Substance: DEXAMETHASONE
     Indication: Product used for unknown indication
     Dosage: 20 MILLIGRAM, ONCE A DAY
     Dates: start: 20250529, end: 20250601
  96. FOLIC ACID [Concomitant]
     Active Substance: FOLIC ACID
     Indication: Prophylaxis
     Dosage: 2.5 MILLIGRAM, ONCE A DAY
     Dates: start: 20250604
  97. FOLIC ACID [Concomitant]
     Active Substance: FOLIC ACID
     Dosage: 5 MILLIGRAM, ONCE A DAY
     Dates: start: 20250604
  98. VITAMIN B12 [Concomitant]
     Active Substance: CYANOCOBALAMIN
     Indication: Prophylaxis
     Dosage: 1 MILLIGRAM, ONCE
     Dates: start: 20250605, end: 20250605
  99. PRIMPERAN [Concomitant]
     Active Substance: METOCLOPRAMIDE HYDROCHLORIDE
     Indication: Prophylaxis of nausea and vomiting
     Dosage: 10 MILLIGRAM
  100. ONDANSETRON [Concomitant]
     Active Substance: ONDANSETRON
     Indication: Nausea
     Dosage: 8 MILLIGRAM, ONCE
     Dates: start: 20250619, end: 20250620
  101. ONDANSETRON [Concomitant]
     Active Substance: ONDANSETRON
     Indication: Gastrointestinal disorder
     Dosage: 8 MILLIGRAM, 3 TIMES A DAY
     Dates: start: 20250616, end: 20250619
  102. MEROPENEM [Concomitant]
     Active Substance: MEROPENEM
     Indication: Pneumonia streptococcal
     Dosage: 2 MILLIGRAM, 3 TIMES A DAY
     Dates: start: 20250619, end: 202506
  103. CEFTRIAXONE [Concomitant]
     Active Substance: CEFTRIAXONE
     Indication: Pneumonia streptococcal
     Dosage: 1 GRAM, TWO TIMES A DAY
     Dates: start: 20250628
  104. LEVOFLOXACIN [Concomitant]
     Active Substance: LEVOFLOXACIN
     Indication: Pneumonia streptococcal
     Dosage: 750 MILLIGRAM, ONCE A DAY
     Dates: start: 20250628
  105. FILGRASTIM [Concomitant]
     Active Substance: FILGRASTIM
     Indication: Neutropenia
     Dosage: 0.5 MILLILITER, ONCE A DAY
     Dates: start: 20250618, end: 20250619
  106. FILGRASTIM [Concomitant]
     Active Substance: FILGRASTIM
     Dosage: 0.5 MILLILITER, ONCE A DAY
     Dates: start: 20250621, end: 20250621
  107. FILGRASTIM [Concomitant]
     Active Substance: FILGRASTIM
     Dosage: 0.5 MILLILITER, ONCE A DAY
     Dates: start: 20250707, end: 20250707
  108. FILGRASTIM [Concomitant]
     Active Substance: FILGRASTIM
     Dosage: 480 MICROGRAM
     Dates: start: 20250804, end: 20250808
  109. FILGRASTIM [Concomitant]
     Active Substance: FILGRASTIM
     Dosage: 0.5 MILLILITER, ONCE A DAY
     Dates: start: 20251010, end: 20251010
  110. Hibor [Concomitant]
     Indication: Thrombosis prophylaxis
     Dosage: 5000 INTERNATIONAL UNIT, ONCE A DAY
     Dates: start: 20250530, end: 20250608
  111. ESCITALOPRAM [Concomitant]
     Active Substance: ESCITALOPRAM OXALATE
     Indication: Antidepressant therapy
     Dosage: 20 MILLIGRAM, ONCE A DAY
     Dates: start: 2025
  112. MESNA [Concomitant]
     Active Substance: MESNA
     Indication: Urinary tract infection
     Dosage: 1 APPLICATION
     Dates: start: 20250616, end: 20250616
  113. NYSTATIN [Concomitant]
     Active Substance: NYSTATIN
     Indication: Infection prophylaxis
     Dosage: 1 APPLICATION
     Route: 050
  114. Azytromicine [Concomitant]
     Indication: Infection prophylaxis
     Dosage: 250 MILLIGRAM, ONCE A DAY
     Dates: start: 20250707
  115. FILGRASTIM [Concomitant]
     Active Substance: FILGRASTIM
     Indication: Product used for unknown indication
     Dosage: 0.5 MILLIGRAM, ONCE A DAY
     Dates: start: 20250623, end: 20250625
  116. FILGRASTIM [Concomitant]
     Active Substance: FILGRASTIM
     Dosage: 0.5 MILLIGRAM, ONCE A DAY
     Dates: start: 20250718, end: 20250720
  117. Akynzeo [Concomitant]
     Indication: Prophylaxis of nausea and vomiting
     Dosage: 1 DOSAGE FORM, DAILY
     Dates: start: 20250929, end: 20251003
  118. Piperacicline Tazobactam [Concomitant]
     Indication: Rhinovirus infection
     Dosage: 1 DOSAGE FORM, 3 TIMES A DAY
     Dates: start: 20251010, end: 20251012
  119. Amoxiciline [Concomitant]
     Indication: Rhinovirus infection
     Dosage: 1000 MILLIGRAM, 3 TIMES A DAY
     Dates: start: 20251012, end: 20251019

REACTIONS (13)
  - Neutropenia [Recovered/Resolved]
  - Pneumonia streptococcal [Recovered/Resolved]
  - Pneumococcal bacteraemia [Recovered/Resolved]
  - Rhinovirus infection [Recovered/Resolved]
  - Adrenal suppression [Recovering/Resolving]
  - Neuropathy peripheral [Recovering/Resolving]
  - Febrile neutropenia [Recovered/Resolved]
  - Hypothalamic pituitary adrenal axis suppression [Recovering/Resolving]
  - Asthenia [Not Recovered/Not Resolved]
  - Nausea [Recovered/Resolved]
  - Vomiting [Recovered/Resolved]
  - Pain in jaw [Recovered/Resolved]
  - Hypertriglyceridaemia [Recovering/Resolving]

NARRATIVE: CASE EVENT DATE: 20250529
